FAERS Safety Report 7044916-9 (Version None)
Quarter: 2010Q4

REPORT INFORMATION
  Report Type: 
  Country: None (occurrence: None)
  Receive Date: 20101014
  Receipt Date: 20100903
  Transmission Date: 20110411
  Serious: Yes (Death, Other)
  Sender: FDA-Public Use
  Company Number: US-BAXTER-2010BH004648

PATIENT
  Sex: Male

DRUGS (2)
  1. HEPARIN SODIUM INJECTION [Suspect]
     Indication: PRODUCT USED FOR UNKNOWN INDICATION
     Route: 065
     Dates: end: 20080214
  2. HEPARIN SODIUM INJECTION [Suspect]
     Route: 065
     Dates: start: 20080127, end: 20080214

REACTIONS (2)
  - ADVERSE EVENT [None]
  - DEATH [None]
